FAERS Safety Report 8604533-3 (Version None)
Quarter: 2012Q3

REPORT INFORMATION
  Report Type: 
  Country: None (occurrence: None)
  Receive Date: 20120820
  Receipt Date: 20120810
  Transmission Date: 20120928
  Serious: Yes (Other)
  Sender: FDA-Public Use
  Company Number: CA-JNJFOC-20120805505

PATIENT
  Sex: Male
  Weight: 68 kg

DRUGS (11)
  1. METFORMIN HCL [Concomitant]
     Route: 065
  2. ASPIRIN [Concomitant]
     Route: 065
  3. GABAPENTIN [Concomitant]
     Route: 065
  4. DOVOBET [Concomitant]
     Route: 065
  5. CRESTOR [Concomitant]
     Route: 065
  6. GLYBURIDE [Concomitant]
     Route: 065
  7. ALL OTHER THERAPEUTICS [Concomitant]
     Route: 065
  8. DICLOFENAC [Concomitant]
     Route: 065
  9. ROSIGLITAZONE [Concomitant]
     Route: 065
  10. REMICADE [Suspect]
     Indication: PSORIASIS
     Route: 042
     Dates: start: 20111117
  11. PERINDOPRIL ERBUMINE [Concomitant]
     Route: 065

REACTIONS (1)
  - EYELID TUMOUR [None]
